FAERS Safety Report 6838251-9 (Version None)
Quarter: 2010Q3

REPORT INFORMATION
  Report Type: 
  Country: None (occurrence: None)
  Receive Date: 20100713
  Receipt Date: 20070606
  Transmission Date: 20110219
  Serious: No
  Sender: FDA-Public Use
  Company Number: US-PFIZER INC-2007047796

PATIENT
  Sex: Male
  Weight: 70.3 kg

DRUGS (5)
  1. CHANTIX [Suspect]
     Indication: SMOKING CESSATION THERAPY
     Dates: start: 20070531, end: 20070605
  2. WELLBUTRIN [Concomitant]
  3. SEROQUEL [Concomitant]
     Indication: SLEEP DISORDER
  4. FELODIPINE [Concomitant]
  5. OMEPRAZOLE [Concomitant]

REACTIONS (3)
  - CONSTIPATION [None]
  - MIGRAINE [None]
  - NAUSEA [None]
